FAERS Safety Report 4663896-4 (Version None)
Quarter: 2005Q2

REPORT INFORMATION
  Report Type: 
  Country: None (occurrence: None)
  Receive Date: 20050516
  Receipt Date: 20050502
  Transmission Date: 20051028
  Serious: Yes (Hospitalization)
  Sender: FDA-Public Use
  Company Number: 2005068535

PATIENT
  Age: 38 Year
  Sex: Female
  Weight: 69.8539 kg

DRUGS (6)
  1. SUDAFED 12 HOUR [Suspect]
     Indication: NASOPHARYNGITIS
     Dosage: ORAL
     Route: 048
     Dates: start: 20050401
  2. GEODON (ZIPRASIDONE HYDROCHLORIDE ) (ZIPERAZIDONE) [Suspect]
     Dosage: 80 MG QD
     Dates: start: 20040401, end: 20050426
  3. OLANZAPINE (OLANZAPINE) [Concomitant]
  4. BUPROPION HYDROCHLORIDE [Concomitant]
  5. METFORMIN HCL [Concomitant]
  6. MORPHINE [Concomitant]

REACTIONS (11)
  - BLOOD CREATININE INCREASED [None]
  - COMA [None]
  - FATIGUE [None]
  - HEMIPLEGIA [None]
  - HEPATIC ENZYME INCREASED [None]
  - METABOLIC ENCEPHALOPATHY [None]
  - MOBILITY DECREASED [None]
  - PNEUMONIA ASPIRATION [None]
  - UNRESPONSIVE TO PAIN STIMULI [None]
  - VOMITING [None]
  - WHITE BLOOD CELL COUNT INCREASED [None]
